FAERS Safety Report 20745570 (Version 1)
Quarter: 2022Q2

REPORT INFORMATION
  Report Type: Spontaneous
  Country: DE (occurrence: DE)
  Receive Date: 20220425
  Receipt Date: 20220425
  Transmission Date: 20220721
  Serious: Yes (Other)
  Sender: FDA-Public Use
  Company Number: None

PATIENT
  Age: 67 Year
  Sex: Female
  Weight: 59 kg

DRUGS (2)
  1. PYLERA [Interacting]
     Active Substance: BISMUTH SUBCITRATE POTASSIUM\METRONIDAZOLE\TETRACYCLINE HYDROCHLORIDE
     Indication: Helicobacter infection
     Dosage: 4 X DAILY 3 CAPSULES EACH (ABOUT EVERY 6 HOURS)
     Route: 048
     Dates: start: 20220301, end: 20220311
  2. OMEPRAZOLE [Interacting]
     Active Substance: OMEPRAZOLE
     Indication: Helicobacter infection
     Dosage: 2 X DAILY 1 CAPSULE EACH
     Route: 048
     Dates: start: 20220301, end: 20220311

REACTIONS (8)
  - Weight decreased [Recovering/Resolving]
  - Diarrhoea [Recovering/Resolving]
  - Body temperature increased [Recovered/Resolved]
  - Clostridial infection [Recovering/Resolving]
  - Incorrect dose administered [Recovered/Resolved]
  - Inappropriate schedule of product administration [Recovered/Resolved]
  - Off label use [Recovered/Resolved]
  - Drug interaction [Unknown]

NARRATIVE: CASE EVENT DATE: 20220301
